FAERS Safety Report 6614955-8 (Version None)
Quarter: 2010Q1

REPORT INFORMATION
  Report Type: 
  Country: None (occurrence: None)
  Receive Date: 20100305
  Receipt Date: 20100219
  Transmission Date: 20100710
  Serious: No
  Sender: FDA-Public Use
  Company Number: US-JNJFOC-20100210047

PATIENT
  Sex: Female
  Weight: 60.33 kg

DRUGS (3)
  1. FENTANYL CITRATE [Suspect]
     Indication: PAIN
     Route: 062
  2. SEROQUEL [Concomitant]
     Indication: SLEEP DISORDER THERAPY
     Route: 048
  3. LORAZEPAM [Concomitant]
     Indication: SLEEP DISORDER THERAPY
     Route: 048

REACTIONS (2)
  - DRUG INEFFECTIVE [None]
  - TREATMENT NONCOMPLIANCE [None]
